FAERS Safety Report 18035081 (Version 1)
Quarter: 2020Q3

REPORT INFORMATION
  Report Type: Spontaneous
  Country: US (occurrence: US)
  Receive Date: 20200717
  Receipt Date: 20200717
  Transmission Date: 20201103
  Serious: Yes (Other)
  Sender: FDA-Public Use
  Company Number: US-STRIDES ARCOLAB LIMITED-2020SP003088

PATIENT
  Age: 69 Year
  Sex: Female

DRUGS (1)
  1. METRONIDAZOLE. [Suspect]
     Active Substance: METRONIDAZOLE
     Indication: BRAIN ABSCESS
     Dosage: 64 GRAM
     Route: 065

REACTIONS (3)
  - Headache [Recovered/Resolved]
  - Neurotoxicity [Unknown]
  - Ataxia [Recovered/Resolved]
